FAERS Safety Report 14300753 (Version 2)
Quarter: 2017Q4

REPORT INFORMATION
  Report Type: Spontaneous
  Country: US (occurrence: US)
  Receive Date: 20171219
  Receipt Date: 20171229
  Transmission Date: 20180321
  Serious: No
  Sender: FDA-Public Use
  Company Number: US-009507513-1712USA006365

PATIENT
  Sex: Female
  Weight: 84.81 kg

DRUGS (1)
  1. NEXPLANON [Suspect]
     Active Substance: ETONOGESTREL
     Indication: CONTRACEPTION
     Dosage: 68 MG / ONE ROD PER 3 YEARS
     Route: 059
     Dates: start: 20141102, end: 20170218

REACTIONS (3)
  - Migration of implanted drug [Recovered/Resolved]
  - Menstruation irregular [Recovered/Resolved]
  - Expired product administered [Unknown]

NARRATIVE: CASE EVENT DATE: 20170131
